FAERS Safety Report 7206469-1 (Version None)
Quarter: 2011Q1

REPORT INFORMATION
  Report Type: 
  Country: None (occurrence: None)
  Receive Date: 20110103
  Receipt Date: 20101229
  Transmission Date: 20110831
  Serious: Yes (Hospitalization)
  Sender: FDA-Public Use
  Company Number: FR-PFIZER INC-2010180962

PATIENT
  Age: 38 Year
  Sex: Female

DRUGS (14)
  1. TAZOCILLINE [Suspect]
     Dosage: UNK
     Dates: start: 20100118, end: 20100120
  2. ASPEGIC 1000 [Concomitant]
     Dosage: 100 MG, 1X/DAY
  3. SECTRAL [Concomitant]
     Dosage: 200 MG, 1X/DAY
  4. MONICOR [Concomitant]
     Dosage: 40 MG, 1X/DAY
  5. TARDYFERON [Concomitant]
     Dosage: 2 DF, 1X/DAY
  6. MOLSIDOMINE [Concomitant]
     Dosage: 3 DF, 3X/DAY
  7. LASIX [Suspect]
     Dosage: 40 MG, 1X/DAY
     Dates: start: 20100118
  8. CORTANCYL [Concomitant]
     Dosage: 5 MG, 1X/DAY
  9. ROVAMYCINE [Interacting]
     Dosage: UNK
     Dates: start: 20100118, end: 20100120
  10. MOPRAL [Concomitant]
     Dosage: 20 MG, 1X/DAY
  11. ELISOR [Concomitant]
     Dosage: 20 MG, 1X/DAY
  12. PROGRAF [Interacting]
     Dosage: 2 MG, 2X/DAY
     Dates: start: 20100118
  13. CELL CEPT [Concomitant]
     Dosage: UNK
  14. PLAVIX [Concomitant]
     Dosage: 75 MG, 1X/DAY

REACTIONS (3)
  - OVERDOSE [None]
  - RENAL FAILURE ACUTE [None]
  - DRUG INTERACTION [None]
